FAERS Safety Report 7820223-9 (Version None)
Quarter: 2011Q4

REPORT INFORMATION
  Report Type: 
  Country: None (occurrence: None)
  Receive Date: 20111018
  Receipt Date: 20111004
  Transmission Date: 20120403
  Serious: Yes (Other)
  Sender: FDA-Public Use
  Company Number: CA-ELI_LILLY_AND_COMPANY-CA201110000625

PATIENT
  Sex: Male

DRUGS (8)
  1. ZYPREXA ZYDIS [Suspect]
     Dosage: 20 MG, QD
  2. HALDOL [Concomitant]
  3. ZYPREXA ZYDIS [Suspect]
     Indication: SCHIZOPHRENIA, PARANOID TYPE
     Dosage: 15 MG, QD
  4. ZYPREXA [Suspect]
     Dosage: 20 MG, QD
  5. ZYPREXA ZYDIS [Suspect]
     Dosage: 30 MG, QD
  6. LORAZEPAM [Concomitant]
  7. ZYPREXA [Suspect]
     Indication: SCHIZOPHRENIA, PARANOID TYPE
     Dosage: 30 MG, QD
     Dates: start: 20030101
  8. ZYPREXA [Suspect]
     Dosage: 10 MG, EACH EVENING

REACTIONS (28)
  - CHEST PAIN [None]
  - TREMOR [None]
  - WEIGHT INCREASED [None]
  - NAUSEA [None]
  - DYSPNOEA [None]
  - DIABETES MELLITUS [None]
  - BONE PAIN [None]
  - VISION BLURRED [None]
  - ABDOMINAL PAIN UPPER [None]
  - ALANINE AMINOTRANSFERASE INCREASED [None]
  - CEREBROVASCULAR ACCIDENT [None]
  - HYPOKINESIA [None]
  - CONVULSION [None]
  - HAEMOGLOBIN DECREASED [None]
  - VOMITING [None]
  - DRY MOUTH [None]
  - RED BLOOD CELL COUNT DECREASED [None]
  - TOOTH INJURY [None]
  - HEADACHE [None]
  - INSOMNIA [None]
  - WHITE BLOOD CELL COUNT INCREASED [None]
  - PAIN [None]
  - BLINDNESS [None]
  - BRUXISM [None]
  - DYSKINESIA [None]
  - HYPOAESTHESIA [None]
  - HYPERGLYCAEMIA [None]
  - OVERDOSE [None]
